FAERS Safety Report 8041895-2 (Version None)
Quarter: 2012Q1

REPORT INFORMATION
  Report Type: 
  Country: None (occurrence: None)
  Receive Date: 20120112
  Receipt Date: 20120112
  Transmission Date: 20120608
  Serious: Yes (Death)
  Sender: FDA-Public Use
  Company Number: None

PATIENT
  Age: 43 Year
  Sex: Male
  Weight: 925.78 kg

DRUGS (2)
  1. GEODON [Suspect]
     Indication: BIPOLAR DISORDER
     Dosage: 20MG
     Route: 048
     Dates: start: 20090307, end: 20090307
  2. GEODON [Concomitant]
     Dosage: 40MG
     Route: 048
     Dates: start: 20090307, end: 20090307

REACTIONS (5)
  - CARDIOMEGALY [None]
  - ARRHYTHMIA [None]
  - SOMNOLENCE [None]
  - CARDIAC ARREST [None]
  - MENTAL IMPAIRMENT [None]
